FAERS Safety Report 8393514-3 (Version None)
Quarter: 2012Q2

REPORT INFORMATION
  Report Type: 
  Country: None (occurrence: None)
  Receive Date: 20120529
  Receipt Date: 20120525
  Transmission Date: 20120825
  Serious: Yes (Life-Threatening, Hospitalization, Other)
  Sender: FDA-Public Use
  Company Number: US-AMGEN-USASP2011052022

PATIENT
  Age: 65 Year
  Sex: Female

DRUGS (11)
  1. PREDNISONE [Suspect]
     Indication: RHEUMATOID ARTHRITIS
     Dosage: 5 MG, UNK
     Route: 048
  2. ENBREL [Suspect]
     Indication: RHEUMATOID ARTHRITIS
     Dosage: UNK
     Dates: start: 20110401
  3. HYDROCHLOROTHIAZIDE [Concomitant]
     Dosage: UNK
  4. LORATADINE [Concomitant]
     Dosage: UNK
  5. NEXIUM [Concomitant]
     Dosage: UNK
  6. LISINOPRIL [Concomitant]
     Dosage: UNK
  7. DOCUSATE [Concomitant]
     Dosage: UNK
  8. NABUMETONE [Concomitant]
     Dosage: UNK
  9. PREMARIN [Concomitant]
     Dosage: UNK
  10. PAROXETINE [Concomitant]
     Dosage: UNK
  11. LASIX [Concomitant]
     Dosage: UNK

REACTIONS (2)
  - HERPES ZOSTER DISSEMINATED [None]
  - POST HERPETIC NEURALGIA [None]
